FAERS Safety Report 22341690 (Version 1)
Quarter: 2023Q2

REPORT INFORMATION
  Report Type: Spontaneous
  Country: US (occurrence: US)
  Receive Date: 20230518
  Receipt Date: 20230518
  Transmission Date: 20230721
  Serious: No
  Sender: FDA-Public Use
  Company Number: US-GALDERMA-US2023004621

PATIENT

DRUGS (5)
  1. PROACTIV MD ADAPALENE ACNE TREATMENT [Suspect]
     Active Substance: ADAPALENE
     Indication: Acne
     Dosage: 1 DOSAGE FORM, QD, DIME SIZED AMOUNT AS INSTRUCTED EVERY DAY
     Route: 061
     Dates: start: 202212
  2. Proactiv MD Ultra Hydrating Moisturizer [Concomitant]
     Indication: Acne
     Dosage: 1 DOSAGE FORM, QD, EVERY DAY AS INSTRUCTED
     Route: 061
     Dates: start: 202212
  3. Proactiv MD Ultra Gentle Cleanser [Concomitant]
     Indication: Acne
     Dosage: 1 DOSAGE FORM, QD, EVERY DAY AS INSTRUCTED
     Route: 061
     Dates: start: 202212
  4. PROACTIV BLACKHEAD DISSOLVING [Concomitant]
     Active Substance: SALICYLIC ACID
     Indication: Acne
     Dosage: 1 DOSAGE FORM, QD, EVERY DAY AS INSTRUCTED
     Route: 061
     Dates: start: 202212
  5. PROACTIV ACNE BODY WASH [Concomitant]
     Active Substance: SALICYLIC ACID
     Indication: Acne
     Dosage: 1 DOSAGE FORM, QD, EVERY DAY AS INSTRUCTED
     Route: 061
     Dates: start: 202212

REACTIONS (1)
  - Drug ineffective [Unknown]
